FAERS Safety Report 7690106-6 (Version None)
Quarter: 2011Q3

REPORT INFORMATION
  Report Type: 
  Country: None (occurrence: None)
  Receive Date: 20110818
  Receipt Date: 20110808
  Transmission Date: 20111222
  Serious: Yes (Hospitalization)
  Sender: FDA-Public Use
  Company Number: US-ELI_LILLY_AND_COMPANY-US201108002821

PATIENT
  Sex: Female

DRUGS (10)
  1. TEKTURNA [Concomitant]
  2. AMBIEN [Concomitant]
  3. FORTEO [Suspect]
     Indication: OSTEOPOROSIS
     Dosage: 20 UG, QD
  4. SYNTHROID [Concomitant]
  5. ATENOLOL [Concomitant]
     Dosage: 50 MG, UNK
  6. NORVASC [Concomitant]
     Dosage: 5 MG, UNK
  7. INDAPAMIDE [Concomitant]
     Dosage: 1.25 MG, UNK
  8. MULTIVITAMIN [Concomitant]
  9. TRAMADOL HCL [Concomitant]
     Dosage: UNK, PRN
  10. VITAMIN D [Suspect]
     Dosage: UNK DF, MONTHLY (1/M)

REACTIONS (4)
  - INFECTION [None]
  - MALAISE [None]
  - RASH [None]
  - ASTHENIA [None]
